FAERS Safety Report 5653493-6 (Version None)
Quarter: 2008Q1

REPORT INFORMATION
  Report Type: 
  Country: None (occurrence: None)
  Receive Date: 20080131
  Receipt Date: 20071019
  Transmission Date: 20080703
  Serious: No
  Sender: FDA-Public Use
  Company Number: US200710005026

PATIENT
  Age: 69 Year
  Sex: Female
  Weight: 79.8 kg

DRUGS (8)
  1. BYETTA [Suspect]
     Indication: TYPE 2 DIABETES MELLITUS
     Dosage: 5 UG, 2/D, SUBCUTANEOUS; 10 UG, 2/D, SUBCUTANEOUS
     Route: 058
     Dates: start: 20070601, end: 20070701
  2. BYETTA [Suspect]
     Indication: TYPE 2 DIABETES MELLITUS
     Dosage: 5 UG, 2/D, SUBCUTANEOUS; 10 UG, 2/D, SUBCUTANEOUS
     Route: 058
     Dates: start: 20070701
  3. EXENATIDE 5MCG PEN, DISPOSABLE DEVICE (EXENATIDE PEN (5MCG)) PEN,DISPO [Concomitant]
  4. FOSAMAX [Concomitant]
  5. AMARYL [Concomitant]
  6. GLUCOPHAGE /SCH/ (METFORMIN HYDROCHLORIDE) [Concomitant]
  7. ASPIRIN [Concomitant]
  8. TYLENOL /USA/ (PARACETAMOL) [Concomitant]

REACTIONS (10)
  - ABDOMINAL PAIN [None]
  - BLOOD GLUCOSE INCREASED [None]
  - COUGH [None]
  - DYSPEPSIA [None]
  - HYPERTENSION [None]
  - NASOPHARYNGITIS [None]
  - NAUSEA [None]
  - PALPITATIONS [None]
  - RHINORRHOEA [None]
  - WEIGHT DECREASED [None]
